FAERS Safety Report 7452159-X (Version None)
Quarter: 2011Q2

REPORT INFORMATION
  Report Type: 
  Country: None (occurrence: None)
  Receive Date: 20110502
  Receipt Date: 20110422
  Transmission Date: 20111010
  Serious: No
  Sender: FDA-Public Use
  Company Number: US-ROXANE LABORATORIES, INC.-2011-RO-00561RO

PATIENT
  Sex: Male

DRUGS (3)
  1. METFORMIN [Concomitant]
     Indication: DIABETES MELLITUS
  2. AZATHIOPRINE [Suspect]
     Indication: PEMPHIGOID
     Dosage: 200 MG
     Route: 048
     Dates: start: 20010101
  3. WARFARIN [Concomitant]

REACTIONS (1)
  - DRUG INEFFECTIVE [None]
